FAERS Safety Report 4908982-6 (Version None)
Quarter: 2006Q1

REPORT INFORMATION
  Report Type: 
  Country: None (occurrence: None)
  Receive Date: 20060210
  Receipt Date: 20060210
  Transmission Date: 20060701
  Serious: Yes (Life-Threatening)
  Sender: FDA-Public Use
  Company Number: None

PATIENT
  Age: 57 Year
  Sex: Male
  Weight: 78 kg

DRUGS (6)
  1. CLOZARIL [Suspect]
     Indication: SCHIZOPHRENIA
     Dosage: 400 MG QD (4X 100MG)
     Dates: start: 20060127, end: 20060129
  2. LEVAQUIN [Concomitant]
  3. FLAGYL [Concomitant]
  4. ROCEPHIN [Concomitant]
  5. PROTONIX [Concomitant]
  6. PROZAC [Concomitant]

REACTIONS (2)
  - CONVULSION [None]
  - NEUROLEPTIC MALIGNANT SYNDROME [None]
